FAERS Safety Report 13970119 (Version 1)
Quarter: 2017Q3

REPORT INFORMATION
  Report Type: Spontaneous
  Country: US (occurrence: US)
  Receive Date: 20170914
  Receipt Date: 20170914
  Transmission Date: 20171128
  Serious: No
  Sender: FDA-Public Use
  Company Number: US-ASTELLAS-2017US001057

PATIENT
  Sex: Male

DRUGS (4)
  1. XTANDI [Suspect]
     Active Substance: ENZALUTAMIDE
     Indication: PROSTATE CANCER METASTATIC
     Route: 065
     Dates: start: 201612, end: 201701
  2. XTANDI [Suspect]
     Active Substance: ENZALUTAMIDE
     Route: 065
     Dates: start: 201702
  3. XTANDI [Suspect]
     Active Substance: ENZALUTAMIDE
     Route: 065
     Dates: start: 201701, end: 201702
  4. XTANDI [Suspect]
     Active Substance: ENZALUTAMIDE
     Route: 065
     Dates: start: 20170320

REACTIONS (12)
  - Vertigo [Unknown]
  - Prostatic specific antigen increased [Unknown]
  - Hypotension [Unknown]
  - Hypoaesthesia [Unknown]
  - Hot flush [Unknown]
  - Asthenia [Unknown]
  - Decreased appetite [Unknown]
  - Fatigue [Unknown]
  - Movement disorder [Unknown]
  - Paraesthesia [Unknown]
  - Dizziness [Unknown]
  - Headache [Recovered/Resolved]
